FAERS Safety Report 13476629 (Version 1)
Quarter: 2017Q2

REPORT INFORMATION
  Report Type: Spontaneous
  Country: IT (occurrence: IT)
  Receive Date: 20170425
  Receipt Date: 20170425
  Transmission Date: 20170830
  Serious: Yes (Hospitalization)
  Sender: FDA-Public Use
  Company Number: PHHY2017IT057962

PATIENT
  Age: 56 Year
  Sex: Female

DRUGS (5)
  1. DEPAKIN CHRONO [Suspect]
     Active Substance: VALPROIC ACID
     Indication: DRUG USE DISORDER
     Dosage: 3000 MG, UNK
     Route: 048
     Dates: start: 20170202, end: 20170202
  2. OLANZAPIN [Suspect]
     Active Substance: OLANZAPINE
     Indication: DRUG USE DISORDER
     Dosage: 35 MG, UNK
     Route: 048
     Dates: start: 20170202, end: 20170202
  3. BRINTELLIX [Concomitant]
     Active Substance: VORTIOXETINE HYDROBROMIDE
     Indication: PRODUCT USED FOR UNKNOWN INDICATION
     Dosage: 10 MG, UNK
     Route: 048
  4. ZOLOFT [Concomitant]
     Active Substance: SERTRALINE HYDROCHLORIDE
     Indication: PRODUCT USED FOR UNKNOWN INDICATION
     Dosage: 100 MG, UNK
     Route: 048
  5. LAMICTAL [Suspect]
     Active Substance: LAMOTRIGINE
     Indication: DRUG USE DISORDER
     Dosage: 700 MG, UNK
     Route: 048
     Dates: start: 20170202, end: 20170223

REACTIONS (4)
  - Suicidal behaviour [Unknown]
  - Drug use disorder [Unknown]
  - Sopor [Unknown]
  - Poisoning [Unknown]

NARRATIVE: CASE EVENT DATE: 20170202
